FAERS Safety Report 9355947 (Version 1)
Quarter: 2013Q2

REPORT INFORMATION
  Report Type: Spontaneous
  Country: US (occurrence: US)
  Receive Date: 20130619
  Receipt Date: 20130619
  Transmission Date: 20140414
  Serious: No
  Sender: FDA-Public Use
  Company Number: US-ASTRAZENECA-2013SE41250

PATIENT
  Sex: Female

DRUGS (3)
  1. CRESTOR [Suspect]
     Route: 048
  2. XELJANZ [Suspect]
     Indication: RHEUMATOID ARTHRITIS
     Route: 048
  3. ORENCIA [Concomitant]

REACTIONS (6)
  - Drug hypersensitivity [Unknown]
  - Urinary tract infection [Unknown]
  - Local swelling [Unknown]
  - Fatigue [Unknown]
  - Musculoskeletal pain [Unknown]
  - Pain in extremity [Unknown]
